FAERS Safety Report 16188624 (Version 1)
Quarter: 2019Q2

REPORT INFORMATION
  Report Type: Spontaneous
  Country: US (occurrence: US)
  Receive Date: 20190412
  Receipt Date: 20190412
  Transmission Date: 20190711
  Serious: No
  Sender: FDA-Public Use
  Company Number: US-JNJFOC-20190335003

PATIENT

DRUGS (2)
  1. ZYRTEC [Suspect]
     Active Substance: CETIRIZINE HYDROCHLORIDE
     Route: 065
  2. ZYRTEC [Suspect]
     Active Substance: CETIRIZINE HYDROCHLORIDE
     Indication: PRODUCT USED FOR UNKNOWN INDICATION
     Route: 065

REACTIONS (10)
  - Dizziness [Unknown]
  - Vertigo [Unknown]
  - Tremor [Unknown]
  - Fatigue [Unknown]
  - Adverse event [Unknown]
  - Palpitations [Unknown]
  - Withdrawal syndrome [Unknown]
  - Malaise [Unknown]
  - Rash [Unknown]
  - Asthenia [Unknown]
